FAERS Safety Report 5739866-1 (Version None)
Quarter: 2008Q2

REPORT INFORMATION
  Report Type: 
  Country: None (occurrence: None)
  Receive Date: 20080513
  Receipt Date: 20080513
  Transmission Date: 20081010
  Serious: Yes (Hospitalization)
  Sender: FDA-Public Use
  Company Number: None

PATIENT
  Sex: Male
  Weight: 66.6788 kg

DRUGS (1)
  1. ERLOTINIB 150MG GENETECH/OSI [Suspect]
     Indication: MYELODYSPLASTIC SYNDROME
     Dosage: 150MG DAILY PO
     Route: 048
     Dates: start: 20080407, end: 20080512

REACTIONS (2)
  - DISORIENTATION [None]
  - INCOHERENT [None]
